FAERS Safety Report 14381236 (Version 17)
Quarter: 2020Q1

REPORT INFORMATION
  Report Type: Report from Study
  Country: ES (occurrence: ES)
  Receive Date: 20180112
  Receipt Date: 20200327
  Transmission Date: 20200409
  Serious: Yes (Hospitalization)
  Sender: FDA-Public Use
  Company Number: ES-SA-2017SA257093

PATIENT
  Age: 34 Year
  Sex: Female
  Weight: 62 kg

DRUGS (8)
  1. ESCITALOPRAM [Concomitant]
     Active Substance: ESCITALOPRAM OXALATE
     Dosage: 10 MG
     Route: 048
     Dates: start: 20180111
  2. ALEMTUZUMAB [Suspect]
     Active Substance: ALEMTUZUMAB
     Indication: RELAPSING MULTIPLE SCLEROSIS
     Dosage: 12 MG,QD
     Route: 041
     Dates: start: 20170110, end: 20170112
  3. TECFIDERA [Concomitant]
     Active Substance: DIMETHYL FUMARATE
     Dosage: UNK UNK, UNK
     Route: 065
     Dates: start: 20150430, end: 20160111
  4. PROPANOLOL [PROPRANOLOL] [Concomitant]
     Active Substance: PROPRANOLOL HYDROCHLORIDE
     Dosage: 60 MG
     Route: 048
     Dates: start: 20180226, end: 20180504
  5. PANTOPRAZOL [PANTOPRAZOLE] [Concomitant]
     Active Substance: PANTOPRAZOLE
     Indication: PROPHYLAXIS
     Dosage: 40 MG
     Route: 048
     Dates: start: 20180111
  6. ALEMTUZUMAB [Suspect]
     Active Substance: ALEMTUZUMAB
     Dosage: 12 MG,QD
     Route: 041
     Dates: start: 20160118, end: 20160122
  7. CHOLECALCIFEROL [Concomitant]
     Active Substance: CHOLECALCIFEROL
     Dosage: UNK UNK,UNK
     Route: 065
     Dates: start: 20151120
  8. DESLORATADINE. [Concomitant]
     Active Substance: DESLORATADINE
     Dosage: 5 MG
     Route: 048
     Dates: start: 20180226

REACTIONS (13)
  - Blood folate decreased [Not Recovered/Not Resolved]
  - Menstruation delayed [Recovered/Resolved]
  - Menstruation irregular [Recovering/Resolving]
  - Autoimmune haemolytic anaemia [Recovering/Resolving]
  - Headache [Recovered/Resolved]
  - Lymphopenia [Recovered/Resolved]
  - Nasopharyngitis [Recovered/Resolved]
  - Basedow^s disease [Not Recovered/Not Resolved]
  - Basedow^s disease [Not Recovered/Not Resolved]
  - Limb injury [Recovered/Resolved]
  - Oedema peripheral [Recovered/Resolved]
  - Eczema [Not Recovered/Not Resolved]
  - Limb injury [Recovered/Resolved]

NARRATIVE: CASE EVENT DATE: 20170111
